FAERS Safety Report 23319057 (Version 1)
Quarter: 2023Q4

REPORT INFORMATION
  Report Type: Spontaneous
  Country: US (occurrence: US)
  Receive Date: 20231220
  Receipt Date: 20231220
  Transmission Date: 20240109
  Serious: No
  Sender: FDA-Public Use
  Company Number: US-Accord-303175

PATIENT
  Sex: Female

DRUGS (4)
  1. BUPROPION HYDROCHLORIDE [Suspect]
     Active Substance: BUPROPION HYDROCHLORIDE
     Indication: Anxiety
     Dosage: EXTENDED-RELEASE TABLETS
     Route: 065
     Dates: start: 20230104
  2. LAMOTRIGINE [Concomitant]
     Active Substance: LAMOTRIGINE
  3. METHYLPHENIDATE [Concomitant]
     Active Substance: METHYLPHENIDATE
  4. Levosulpiride, Esomeprazole [Concomitant]

REACTIONS (2)
  - Product odour abnormal [Unknown]
  - Off label use [Unknown]
